FAERS Safety Report 8921857 (Version 2)
Quarter: 2013Q1

REPORT INFORMATION
  Report Type: Spontaneous
  Country: CA (occurrence: CA)
  Receive Date: 20121121
  Receipt Date: 20130122
  Transmission Date: 20140127
  Serious: No
  Sender: FDA-Public Use
  Company Number: GB-WATSON-2012-19939

PATIENT
  Age: 41 Year
  Sex: Male

DRUGS (1)
  1. MORPHINE SULFATE (UNKNOWN) [Suspect]
     Indication: SPINAL ANAESTHESIA
     Dosage: 16 MG, DAILY
     Route: 037

REACTIONS (3)
  - Injection site granuloma [Unknown]
  - Somnolence [Unknown]
  - Decreased appetite [Unknown]
